FAERS Safety Report 10154292 (Version 2)
Quarter: 2014Q2

REPORT INFORMATION
  Report Type: Spontaneous
  Country: BR (occurrence: BR)
  Receive Date: 20140506
  Receipt Date: 20140612
  Transmission Date: 20141212
  Serious: Yes (Other)
  Sender: FDA-Public Use
  Company Number: BR-JNJFOC-20140419676

PATIENT
  Age: 58 Year
  Sex: Male

DRUGS (8)
  1. SIMPONI [Suspect]
     Indication: RHEUMATOID ARTHRITIS
     Route: 058
  2. SIMPONI [Suspect]
     Indication: RHEUMATOID ARTHRITIS
     Route: 058
     Dates: start: 20140401
  3. ARAVA [Concomitant]
     Indication: RHEUMATOID ARTHRITIS
     Route: 065
  4. GALVUS [Concomitant]
     Indication: DIABETES MELLITUS
     Route: 065
  5. MELITOR [Concomitant]
     Indication: DIABETES MELLITUS
     Route: 065
  6. ACETYLSALICYLIC ACID [Concomitant]
     Indication: CARDIAC DISORDER
     Route: 065
  7. OMEPRAZOLE [Concomitant]
     Indication: GASTRIC DISORDER
     Route: 065
  8. SIMVASTATIN [Concomitant]
     Indication: HYPERCHOLESTEROLAEMIA
     Route: 065

REACTIONS (3)
  - Angina pectoris [Not Recovered/Not Resolved]
  - Device malfunction [Unknown]
  - Underdose [Unknown]
